FAERS Safety Report 7866112-5 (Version None)
Quarter: 2011Q4

REPORT INFORMATION
  Report Type: 
  Country: None (occurrence: None)
  Receive Date: 20111028
  Receipt Date: 20110426
  Transmission Date: 20120403
  Serious: No
  Sender: FDA-Public Use
  Company Number: US-GLAXOSMITHKLINE-A0924578A

PATIENT
  Sex: Female

DRUGS (3)
  1. SINGULAIR [Concomitant]
  2. ADVAIR DISKUS 100/50 [Suspect]
     Indication: ASTHMA
     Route: 055
  3. ALBUTEROL [Concomitant]

REACTIONS (4)
  - TREATMENT NONCOMPLIANCE [None]
  - DYSPHONIA [None]
  - CHEST DISCOMFORT [None]
  - DYSPNOEA [None]
